FAERS Safety Report 25441421 (Version 1)
Quarter: 2025Q2

REPORT INFORMATION
  Report Type: Spontaneous
  Country: PL (occurrence: PL)
  Receive Date: 20250616
  Receipt Date: 20250616
  Transmission Date: 20250717
  Serious: Yes (Other)
  Sender: RANBAXY
  Company Number: PL-SUN PHARMACEUTICAL INDUSTRIES LTD-2025R1-511692

PATIENT
  Age: 48 Year
  Sex: Male

DRUGS (1)
  1. LITHIUM [Suspect]
     Active Substance: LITHIUM
     Indication: Mania
     Dosage: 1250 MILLIGRAM, DAILY
     Route: 065

REACTIONS (5)
  - Chronic kidney disease [Unknown]
  - Myocardial infarction [Unknown]
  - Transient ischaemic attack [Unknown]
  - Thirst [Unknown]
  - Tremor [Unknown]

NARRATIVE: CASE EVENT DATE: 19830101
